FAERS Safety Report 11196257 (Version 1)
Quarter: 2015Q2

REPORT INFORMATION
  Report Type: Spontaneous
  Country: US (occurrence: None)
  Receive Date: 20150616
  Receipt Date: 20150616
  Transmission Date: 20150821
  Serious: Yes (Hospitalization)
  Sender: FDA-Public Use
  Company Number: None

PATIENT
  Age: 84 Year
  Sex: Male
  Weight: 84.9 kg

DRUGS (2)
  1. RIVAROXABAN [Suspect]
     Active Substance: RIVAROXABAN
     Indication: ATRIAL FIBRILLATION
     Route: 048
     Dates: start: 20140919, end: 20141101
  2. RIVAROXABAN [Suspect]
     Active Substance: RIVAROXABAN
     Indication: MITRAL VALVE DISEASE
     Route: 048
     Dates: start: 20140919, end: 20141101

REACTIONS (8)
  - Haemoptysis [None]
  - Haematemesis [None]
  - Pharyngo-oesophageal diverticulum [None]
  - Drug dose omission [None]
  - Bronchiectasis [None]
  - Emphysema [None]
  - Hepatic lesion [None]
  - Epistaxis [None]

NARRATIVE: CASE EVENT DATE: 20141104
